FAERS Safety Report 23990823 (Version 1)
Quarter: 2024Q2

REPORT INFORMATION
  Report Type: Spontaneous
  Country: RU (occurrence: RU)
  Receive Date: 20240619
  Receipt Date: 20240619
  Transmission Date: 20240716
  Serious: Yes (Other)
  Sender: FDA-Public Use
  Company Number: RU-TEVA-VS-3203021

PATIENT
  Age: 66 Year
  Sex: Female

DRUGS (2)
  1. CARBAMAZEPINE [Suspect]
     Active Substance: CARBAMAZEPINE
     Indication: Product used for unknown indication
     Dosage: SERIES NUMBER: 16183523?SN: 2017951886517?FINLEPSIN RETARD 200 MG IN QUARTERS FOR 5 DAYS, THEN 7 ...
     Route: 065
  2. CARBAMAZEPINE [Suspect]
     Active Substance: CARBAMAZEPINE
     Indication: Product used for unknown indication
     Route: 065

REACTIONS (10)
  - Angioedema [Unknown]
  - Pain in extremity [Unknown]
  - Off label use [Unknown]
  - Lymphadenopathy [Unknown]
  - Pruritus [Unknown]
  - Psoriasis [Unknown]
  - Hypersensitivity [Unknown]
  - Limb mass [Unknown]
  - Urticaria [Unknown]
  - Herpes virus infection [Recovered/Resolved]
